FAERS Safety Report 5794224-9 (Version None)
Quarter: 2008Q2

REPORT INFORMATION
  Report Type: 
  Country: None (occurrence: None)
  Receive Date: 20080627
  Receipt Date: 20080619
  Transmission Date: 20081010
  Serious: Yes (Hospitalization, Other)
  Sender: FDA-Public Use
  Company Number: JP-ABBOTT-08P-087-0456288-00

PATIENT
  Age: 3 Decade
  Sex: Male
  Weight: 62 kg

DRUGS (9)
  1. KALETRA [Suspect]
     Indication: HIV INFECTION
     Dosage: 800 MG/200 MG
     Route: 048
     Dates: start: 20070401, end: 20070423
  2. KALETRA [Suspect]
     Indication: HIV INFECTION
     Dosage: FOUR 200/50MG TABLETS DAILY
     Route: 048
     Dates: start: 20070424, end: 20070507
  3. RITONAVIR [Concomitant]
     Indication: HIV INFECTION
     Route: 048
     Dates: start: 20071207
  4. LAMIVUDINE [Concomitant]
     Indication: HIV INFECTION
     Route: 048
     Dates: start: 20070401, end: 20070507
  5. LAMIVUDINE [Concomitant]
     Route: 048
     Dates: start: 20071207
  6. TENOFOVIR DISOPROXIL FUMARATE [Concomitant]
     Indication: HIV INFECTION
     Route: 048
     Dates: start: 20070401, end: 20070507
  7. TENOFOVIR DISOPROXIL FUMARATE [Concomitant]
     Route: 048
     Dates: start: 20071207
  8. ATAZANAVIR SULFATE [Concomitant]
     Indication: HIV INFECTION
     Route: 048
     Dates: start: 20071207
  9. PENTAMIDINE ISETHIONATE [Concomitant]
     Indication: ANTIFUNGAL PROPHYLAXIS
     Route: 055
     Dates: start: 20071116, end: 20080117

REACTIONS (7)
  - ABDOMINAL PAIN [None]
  - AMOEBIC DYSENTERY [None]
  - CRYPTOSPORIDIOSIS INFECTION [None]
  - DIARRHOEA [None]
  - LIVER ABSCESS [None]
  - MALAISE [None]
  - PYREXIA [None]
